FAERS Safety Report 7779160-0 (Version None)
Quarter: 2011Q3

REPORT INFORMATION
  Report Type: 
  Country: None (occurrence: None)
  Receive Date: 20110926
  Receipt Date: 20110913
  Transmission Date: 20111222
  Serious: Yes (Other)
  Sender: FDA-Public Use
  Company Number: CA-ELI_LILLY_AND_COMPANY-CA201109003321

PATIENT
  Sex: Female

DRUGS (1)
  1. ZYPREXA [Suspect]

REACTIONS (6)
  - ASTHENIA [None]
  - POLLAKIURIA [None]
  - DIABETES MELLITUS [None]
  - MYOCARDIAL INFARCTION [None]
  - RENAL FAILURE [None]
  - FATIGUE [None]
